FAERS Safety Report 8455384-4 (Version None)
Quarter: 2012Q2

REPORT INFORMATION
  Report Type: 
  Country: None (occurrence: None)
  Receive Date: 20120621
  Receipt Date: 20120611
  Transmission Date: 20120825
  Serious: Yes (Other)
  Sender: FDA-Public Use
  Company Number: US-SHIONOGI, INC-2012000179

PATIENT

DRUGS (2)
  1. CONCERTA [Concomitant]
     Dosage: 54 MG, QD
     Route: 048
     Dates: start: 20110101
  2. KAPVAY [Suspect]
     Indication: ATTENTION DEFICIT/HYPERACTIVITY DISORDER
     Dosage: 0.1 MG, BID
     Route: 048
     Dates: start: 20120330, end: 20120101

REACTIONS (2)
  - AGGRESSION [None]
  - MOOD SWINGS [None]
